FAERS Safety Report 5841114-9 (Version None)
Quarter: 2008Q3

REPORT INFORMATION
  Report Type: 
  Country: None (occurrence: None)
  Receive Date: 20080812
  Receipt Date: 20080805
  Transmission Date: 20090109
  Serious: Yes (Other)
  Sender: FDA-Public Use
  Company Number: PL-RANBAXY-2008RR-16951

PATIENT

DRUGS (2)
  1. GABAPENTIN TABLET 600MG [Suspect]
     Indication: EPILEPSY
     Dosage: 1800 MG, QD
     Route: 048
     Dates: start: 20080416
  2. VALPROIC ACID [Concomitant]
     Indication: EPILEPSY
     Dosage: 1000 MG, UNK
     Dates: start: 20080201

REACTIONS (2)
  - DISTURBANCE IN ATTENTION [None]
  - FEELING ABNORMAL [None]
